FAERS Safety Report 19259220 (Version 1)
Quarter: 2021Q2

REPORT INFORMATION
  Report Type: Spontaneous
  Country: CN (occurrence: CN)
  Receive Date: 20210514
  Receipt Date: 20210514
  Transmission Date: 20210717
  Serious: Yes (Hospitalization)
  Sender: FDA-Public Use
  Company Number: CN-009507513-2105CHN002611

PATIENT
  Age: 61 Year
  Sex: Female
  Weight: 62 kg

DRUGS (1)
  1. KEYTRUDA [Suspect]
     Active Substance: PEMBROLIZUMAB
     Indication: LUNG NEOPLASM MALIGNANT
     Dosage: 200 MG, ONCE A DAY
     Route: 041
     Dates: start: 20210203, end: 20210203

REACTIONS (1)
  - Mucocutaneous disorder [Recovered/Resolved]

NARRATIVE: CASE EVENT DATE: 20210211
